FAERS Safety Report 21555300 (Version 1)
Quarter: 2022Q4

REPORT INFORMATION
  Report Type: Report from Study
  Country: FR (occurrence: None)
  Receive Date: 20221104
  Receipt Date: 20221104
  Transmission Date: 20230113
  Serious: Yes (Other)
  Sender: FDA-Public Use
  Company Number: FR-Merck Healthcare KGaA-9362141

PATIENT
  Sex: Female

DRUGS (1)
  1. LEVOTHYROXINE [Suspect]
     Active Substance: LEVOTHYROXINE
     Indication: Product used for unknown indication

REACTIONS (7)
  - Bone cancer [Unknown]
  - Pain [Unknown]
  - Sleep disorder [Unknown]
  - Fatigue [Unknown]
  - Myalgia [Unknown]
  - Cardiac disorder [Unknown]
  - Palpitations [Unknown]
